FAERS Safety Report 9256839 (Version 1)
Quarter: 2013Q2

REPORT INFORMATION
  Report Type: Spontaneous
  Country: US (occurrence: None)
  Receive Date: 20130423
  Receipt Date: 20130423
  Transmission Date: 20140414
  Serious: Yes (Hospitalization)
  Sender: FDA-Public Use
  Company Number: None

PATIENT
  Age: 9 Year
  Sex: Female
  Weight: 32 kg

DRUGS (2)
  1. ANAKINRA [Suspect]
     Indication: HISTIOCYTOSIS HAEMATOPHAGIC
     Dosage: 100 MG  DAILY  IM
     Route: 030
     Dates: start: 20130125, end: 20130205
  2. ANAKINRA [Suspect]
     Indication: JUVENILE IDIOPATHIC ARTHRITIS
     Dosage: 100 MG  DAILY  IM
     Route: 030
     Dates: start: 20130125, end: 20130205

REACTIONS (7)
  - Erythema [None]
  - Urticaria [None]
  - Injection site erythema [None]
  - Injection site urticaria [None]
  - Cellulitis [None]
  - Blister [None]
  - Injection site vesicles [None]
